FAERS Safety Report 9913360 (Version 1)
Quarter: 2014Q1

REPORT INFORMATION
  Report Type: Spontaneous
  Country: US (occurrence: None)
  Receive Date: 20140218
  Receipt Date: 20140218
  Transmission Date: 20141002
  Serious: Yes (Hospitalization)
  Sender: FDA-Public Use
  Company Number: None

PATIENT
  Age: 65 Year
  Sex: Male
  Weight: 77 kg

DRUGS (11)
  1. OCTREOTIDE [Suspect]
     Indication: HEPATORENAL FAILURE
     Route: 058
  2. MIDODRINE [Suspect]
     Indication: HEPATORENAL FAILURE
     Route: 048
  3. ALBUMIN [Concomitant]
  4. CEFTRIAXONE [Concomitant]
  5. FLUCONAZOLE [Concomitant]
  6. LACTULOSE [Concomitant]
  7. LANSOPRAZOLE [Concomitant]
  8. RIFAXIMIN [Concomitant]
  9. SODIUM BICARBONATE [Concomitant]
  10. DEXTROSE [Concomitant]
  11. FENTANYL [Concomitant]

REACTIONS (1)
  - Bradycardia [None]
